FAERS Safety Report 13167572 (Version 4)
Quarter: 2017Q2

REPORT INFORMATION
  Report Type: Spontaneous
  Country: ES (occurrence: ES)
  Receive Date: 20170131
  Receipt Date: 20170406
  Transmission Date: 20170830
  Serious: Yes (Other)
  Sender: FDA-Public Use
  Company Number: ES-JNJFOC-20170121761

PATIENT
  Age: 80 Year
  Sex: Male

DRUGS (1)
  1. ZYTIGA [Suspect]
     Active Substance: ABIRATERONE ACETATE
     Indication: PROSTATE CANCER
     Route: 048
     Dates: start: 201610, end: 201701

REACTIONS (4)
  - Malaise [Unknown]
  - Blister [Recovered/Resolved]
  - Prostate cancer [Unknown]
  - Fatigue [Unknown]

NARRATIVE: CASE EVENT DATE: 201701
